FAERS Safety Report 14308475 (Version 10)
Quarter: 2019Q4

REPORT INFORMATION
  Report Type: Spontaneous
  Country: FR (occurrence: FR)
  Receive Date: 20171220
  Receipt Date: 20191208
  Transmission Date: 20200122
  Serious: Yes (Hospitalization, Other)
  Sender: FDA-Public Use
  Company Number: PHHY2017FR189483

PATIENT
  Age: 57 Year
  Sex: Male
  Weight: 75 kg

DRUGS (28)
  1. CALCIUM FOLINATE [Suspect]
     Active Substance: LEUCOVORIN CALCIUM
     Dosage: UNK UNK, CYCLIC (1 CYCLE EVERY 14 DAYS) (SIX CYCLES)
     Route: 042
     Dates: start: 20170210
  2. 5-FLUOROURACIL [Suspect]
     Active Substance: FLUOROURACIL
     Indication: NEUROENDOCRINE TUMOUR
     Dosage: UNK UNK, CYCLIC (EVERY 14 DAYS (SIX CYCLES))
     Route: 042
     Dates: start: 20170130
  3. CALCIUM FOLINATE [Suspect]
     Active Substance: LEUCOVORIN CALCIUM
     Dosage: UNK UNK, CYCLIC (1 CYCLE EVERY 14 DAYS) (SIX CYCLES)
     Route: 042
     Dates: start: 20171006
  4. OXALIPLATIN MYLAN [Suspect]
     Active Substance: OXALIPLATIN
     Dosage: UNK, CYCLIC, EVERY 14 DAYS (SIX CYCLES)
     Route: 042
     Dates: start: 20170210, end: 20170723
  5. XELODA [Concomitant]
     Active Substance: CAPECITABINE
     Indication: CHEMOTHERAPY
  6. 5-FLUOROURACIL [Suspect]
     Active Substance: FLUOROURACIL
     Dosage: UNK UNK, CYCLIC (EVERY 14 DAYS (SIX CYCLES))
     Route: 042
     Dates: start: 20170724, end: 20171006
  7. CALCIUM FOLINATE [Suspect]
     Active Substance: LEUCOVORIN CALCIUM
     Dosage: UNK UNK, CYCLIC (1 CYCLE EVERY 14 DAYS) (SIX CYCLES)
     Route: 042
     Dates: start: 20170724, end: 20171006
  8. CALCIUM FOLINATE [Suspect]
     Active Substance: LEUCOVORIN CALCIUM
     Dosage: UNK UNK, CYCLIC (1 CYCLE EVERY 14 DAYS) (SIX CYCLES)
     Route: 042
     Dates: start: 20170210, end: 20170723
  9. SUTENT [Suspect]
     Active Substance: SUNITINIB MALATE
     Indication: PANCREATIC NEUROENDOCRINE TUMOUR METASTATIC
     Dosage: 37.5 MG, QD
     Route: 065
     Dates: start: 20151207, end: 20170116
  10. CAPECITABINE. [Concomitant]
     Active Substance: CAPECITABINE
     Indication: NEOPLASM PROGRESSION
     Dosage: UNK
     Route: 048
  11. 5-FLUOROURACIL [Suspect]
     Active Substance: FLUOROURACIL
     Dosage: UNK, CYCLIC, EVERY 14 DAYS (SIX CYCLES)
     Route: 042
     Dates: start: 20170210, end: 20170723
  12. CALCIUM FOLINATE [Suspect]
     Active Substance: LEUCOVORIN CALCIUM
     Indication: PANCREATIC NEUROENDOCRINE TUMOUR METASTATIC
     Dosage: UNK UNK, CYCLIC (1 CYCLE EVERY 14 DAYS) (SIX CYCLES)
     Route: 042
     Dates: start: 20170130
  13. CALCIUM FOLINATE [Suspect]
     Active Substance: LEUCOVORIN CALCIUM
     Dosage: UNK UNK, CYCLIC (1 CYCLE EVERY 14 DAYS) (SIX CYCLES)
     Route: 042
     Dates: start: 20170721
  14. CALCIUM FOLINATE [Suspect]
     Active Substance: LEUCOVORIN CALCIUM
     Dosage: UNK UNK, CYCLIC (1 CYCLE EVERY 14 DAYS) (SIX CYCLES)
     Route: 042
     Dates: start: 20170723
  15. OXALIPLATIN MYLAN [Suspect]
     Active Substance: OXALIPLATIN
     Indication: NEUROENDOCRINE TUMOUR
     Dosage: UNK UNK, CYCLIC ((EVERY 14 DAYS (SIX CYCLES))
     Route: 042
     Dates: start: 20170201
  16. OXALIPLATIN MYLAN [Suspect]
     Active Substance: OXALIPLATIN
     Dosage: UNK UNK, CYCLIC ((EVERY 14 DAYS (SIX CYCLES))
     Route: 042
     Dates: start: 20170621
  17. 5-FLUOROURACIL [Suspect]
     Active Substance: FLUOROURACIL
     Dosage: UNK UNK, CYCLIC (EVERY 14 DAYS (SIX CYCLES))
     Route: 042
     Dates: start: 20170201
  18. OXALIPLATIN MYLAN [Suspect]
     Active Substance: OXALIPLATIN
     Indication: PANCREATIC NEUROENDOCRINE TUMOUR METASTATIC
     Dosage: UNK UNK, CYCLIC ((EVERY 14 DAYS (SIX CYCLES))
     Route: 042
     Dates: start: 20170130
  19. INSULIN [Concomitant]
     Active Substance: INSULIN NOS
     Dosage: UNK
     Route: 065
  20. 5-FLUOROURACIL [Suspect]
     Active Substance: FLUOROURACIL
     Dosage: UNK UNK, CYCLIC (EVERY 14 DAYS (SIX CYCLES))
     Route: 042
     Dates: start: 20170723
  21. CALCIUM FOLINATE [Suspect]
     Active Substance: LEUCOVORIN CALCIUM
     Dosage: UNK UNK, CYCLIC (1 CYCLE EVERY 14 DAYS) (SIX CYCLES)
     Route: 042
     Dates: start: 20170724, end: 20171001
  22. SUTENT [Suspect]
     Active Substance: SUNITINIB MALATE
     Dosage: 37.5 MG, QD
     Route: 065
     Dates: start: 20170116
  23. INSULIN [Concomitant]
     Active Substance: INSULIN NOS
     Indication: TYPE 2 DIABETES MELLITUS
     Dosage: UNK
     Route: 065
  24. XELODA [Concomitant]
     Active Substance: CAPECITABINE
     Indication: NEOPLASM PROGRESSION
     Dosage: UNK
     Route: 048
  25. 5-FLUOROURACIL [Suspect]
     Active Substance: FLUOROURACIL
     Dosage: UNK UNK, CYCLIC (EVERY 14 DAYS (SIX CYCLES))
     Route: 042
     Dates: start: 20170721
  26. CALCIUM FOLINATE [Suspect]
     Active Substance: LEUCOVORIN CALCIUM
     Indication: NEUROENDOCRINE TUMOUR
     Dosage: UNK, CYCLIC (1 CYCLE EVERY 14 DAYS) (SIX CYCLES)
     Route: 042
     Dates: start: 20170201, end: 20170721
  27. OXALIPLATIN MYLAN [Suspect]
     Active Substance: OXALIPLATIN
     Dosage: UNK UNK, CYCLIC ((EVERY 14 DAYS (SIX CYCLES))
     Route: 042
     Dates: start: 20170723
  28. XELODA [Concomitant]
     Active Substance: CAPECITABINE
     Indication: CHEMOTHERAPY
     Dosage: UNK
     Route: 048
     Dates: start: 20171026

REACTIONS (14)
  - General physical health deterioration [Recovered/Resolved]
  - Small intestinal obstruction [Recovered/Resolved]
  - Hypokalaemia [Recovered/Resolved]
  - Hypercalcaemia [Recovering/Resolving]
  - Sepsis [Recovered/Resolved]
  - Hypoglycaemia [Recovered/Resolved]
  - Hypokalaemia [Not Recovered/Not Resolved]
  - Endocarditis [Recovered/Resolved]
  - Intestinal obstruction [Unknown]
  - Abdominal pain [Recovered/Resolved]
  - Paraesthesia [Recovered/Resolved]
  - Vomiting [Recovered/Resolved]
  - Diarrhoea [Recovered/Resolved]
  - Blood calcium abnormal [Recovered/Resolved]

NARRATIVE: CASE EVENT DATE: 2016
